FAERS Safety Report 5853955-2 (Version None)
Quarter: 2008Q3

REPORT INFORMATION
  Report Type: 
  Country: None (occurrence: None)
  Receive Date: 20080822
  Receipt Date: 20080819
  Transmission Date: 20090109
  Serious: Yes (Hospitalization)
  Sender: FDA-Public Use
  Company Number: B0533680A

PATIENT
  Age: 61 Year
  Sex: Female

DRUGS (7)
  1. ULTIVA [Suspect]
     Route: 042
     Dates: start: 20080520, end: 20080520
  2. DIPRIVAN [Suspect]
     Route: 042
     Dates: start: 20080520, end: 20080520
  3. CELOCURINE [Suspect]
     Route: 042
     Dates: start: 20080520, end: 20080520
  4. CEFAZOLIN [Suspect]
     Route: 042
     Dates: start: 20080520, end: 20080520
  5. PERFALGAN [Suspect]
     Indication: PERIOPERATIVE ANALGESIA
     Route: 042
     Dates: start: 20080520, end: 20080520
  6. ACUPAN [Suspect]
     Indication: PERIOPERATIVE ANALGESIA
     Route: 042
     Dates: start: 20080520, end: 20080520
  7. PROFENID [Suspect]
     Indication: PERIOPERATIVE ANALGESIA
     Route: 042
     Dates: start: 20080520, end: 20080520

REACTIONS (2)
  - ANAPHYLACTIC REACTION [None]
  - HYPOTENSION [None]
